FAERS Safety Report 7622768-3 (Version None)
Quarter: 2011Q3

REPORT INFORMATION
  Report Type: 
  Country: None (occurrence: None)
  Receive Date: 20110701
  Receipt Date: 20110120
  Transmission Date: 20111222
  Serious: Yes (Other)
  Sender: FDA-Public Use
  Company Number: 7037419

PATIENT
  Age: 60 Year
  Sex: Female

DRUGS (1)
  1. REBIF [Suspect]
     Indication: PRODUCT USED FOR UNKNOWN INDICATION
     Dosage: 44 MCG, 3 IN 1, SUBCUTANEOUS
     Route: 058
     Dates: start: 20100204

REACTIONS (3)
  - CONVULSION [None]
  - ABASIA [None]
  - GLUCOSE TOLERANCE IMPAIRED [None]
